FAERS Safety Report 11961225 (Version 2)
Quarter: 2016Q1

REPORT INFORMATION
  Report Type: Report from Study
  Country: US (occurrence: US)
  Receive Date: 20160126
  Receipt Date: 20160202
  Transmission Date: 20160526
  Serious: No
  Sender: FDA-Public Use
  Company Number: US-ABBVIE-15K-163-1369747-00

PATIENT
  Age: 59 Year
  Sex: Male

DRUGS (2)
  1. HUMIRA [Suspect]
     Active Substance: ADALIMUMAB
     Indication: PSORIASIS
     Route: 065
     Dates: start: 20141013, end: 201412
  2. HUMIRA [Interacting]
     Active Substance: ADALIMUMAB
     Route: 065
     Dates: start: 201503

REACTIONS (3)
  - Drug interaction [Unknown]
  - Skin reaction [Unknown]
  - Urticaria [Unknown]

NARRATIVE: CASE EVENT DATE: 201412
